FAERS Safety Report 6743073-3 (Version None)
Quarter: 2010Q2

REPORT INFORMATION
  Report Type: 
  Country: None (occurrence: None)
  Receive Date: 20100527
  Receipt Date: 20100514
  Transmission Date: 20101027
  Serious: Yes (Hospitalization)
  Sender: FDA-Public Use
  Company Number: US-JNJFOC-20100509083

PATIENT
  Sex: Female
  Weight: 71 kg

DRUGS (6)
  1. DOXIL [Suspect]
     Indication: MULTIPLE MYELOMA
     Dosage: CYCLE 3
     Route: 042
  2. DOXIL [Suspect]
     Dosage: CYCLES 1-2
     Route: 042
  3. BORTEZOMIB [Suspect]
     Indication: MULTIPLE MYELOMA
     Dosage: CYCLES 1-2
     Route: 042
  4. BORTEZOMIB [Suspect]
     Dosage: CYCLE 3
     Route: 042
  5. VORINOSTAT [Suspect]
     Indication: MULTIPLE MYELOMA
     Dosage: CYCLES 1-2
     Route: 048
  6. VORINOSTAT [Suspect]
     Dosage: CYCLE 3
     Route: 048

REACTIONS (1)
  - HAEMATEMESIS [None]
